FAERS Safety Report 5743789-1 (Version None)
Quarter: 2008Q2

REPORT INFORMATION
  Report Type: 
  Country: None (occurrence: None)
  Receive Date: 20080516
  Receipt Date: 20071205
  Transmission Date: 20081010
  Serious: Yes (Other)
  Sender: FDA-Public Use
  Company Number: 2007S1000571

PATIENT
  Age: 58 Year
  Sex: Male
  Weight: 65 kg

DRUGS (18)
  1. CUBICIN [Suspect]
     Indication: PNEUMONIA
     Dosage: 6 MG/KG;Q24H;IV
     Route: 042
     Dates: start: 20050716, end: 20050802
  2. CUBICIN [Suspect]
     Indication: SEPSIS
     Dosage: 6 MG/KG;Q24H;IV
     Route: 042
     Dates: start: 20050716, end: 20050802
  3. CUBICIN [Suspect]
     Indication: STAPHYLOCOCCAL INFECTION
     Dosage: 6 MG/KG;Q24H;IV
     Route: 042
     Dates: start: 20050716, end: 20050802
  4. GEMTUZUMAB [Concomitant]
  5. CYTARABINE [Concomitant]
  6. RED BLOOD CELLS PLATELETS, HUMAN BLOOD [Concomitant]
  7. AZTREONAM [Concomitant]
  8. CIPROFLOXACIN [Concomitant]
  9. FLAGYL [Concomitant]
  10. CASPOFUNGIN [Concomitant]
  11. ETANERCEPT [Concomitant]
  12. AMPHOTERICIN B [Concomitant]
  13. PRIMAXIN [Concomitant]
  14. RIFAMPIN [Concomitant]
  15. VANCOMYCIN HCL [Concomitant]
  16. OMEPRAZOLE [Concomitant]
  17. ALLOPURINOL [Concomitant]
  18. NEUPOGEN [Concomitant]

REACTIONS (2)
  - DRUG INEFFECTIVE FOR UNAPPROVED INDICATION [None]
  - GENERAL PHYSICAL HEALTH DETERIORATION [None]
